FAERS Safety Report 7949275-2 (Version None)
Quarter: 2011Q4

REPORT INFORMATION
  Report Type: 
  Country: None (occurrence: None)
  Receive Date: 20111129
  Receipt Date: 20111129
  Transmission Date: 20120403
  Serious: No
  Sender: FDA-Public Use
  Company Number: None

PATIENT
  Sex: Male
  Weight: 74.1 kg

DRUGS (1)
  1. INTRON A [Suspect]
     Dosage: 104 MU
     Dates: end: 20111117

REACTIONS (1)
  - NEUTROPHIL COUNT INCREASED [None]
